FAERS Safety Report 8851000 (Version 3)
Quarter: 2013Q1

REPORT INFORMATION
  Report Type: Spontaneous
  Country: US (occurrence: US)
  Receive Date: 20121019
  Receipt Date: 20130207
  Transmission Date: 20140127
  Serious: Yes (Hospitalization, Other)
  Sender: FDA-Public Use
  Company Number: US-JNJFOC-20121006793

PATIENT
  Age: 42 None
  Sex: Female
  Weight: 56.7 kg

DRUGS (11)
  1. TOPAMAX [Suspect]
     Indication: CONVULSION
     Route: 048
  2. TOPAMAX [Suspect]
     Indication: CONVULSION
     Route: 048
     Dates: start: 201204, end: 201204
  3. TOPAMAX [Suspect]
     Indication: CONVULSION
     Route: 048
     Dates: start: 2000
  4. TOPAMAX [Suspect]
     Indication: CONVULSION
     Route: 048
  5. HALDOL [Suspect]
     Indication: ANXIETY
     Route: 065
     Dates: start: 201209, end: 201209
  6. CETIRIZINE [Suspect]
     Route: 065
  7. CETIRIZINE [Suspect]
     Indication: PRODUCT USED FOR UNKNOWN INDICATION
     Route: 065
  8. ZOLOFT [Suspect]
     Indication: PRODUCT USED FOR UNKNOWN INDICATION
     Route: 065
  9. BUSPAR [Suspect]
     Indication: PRODUCT USED FOR UNKNOWN INDICATION
     Route: 065
  10. VALIUM [Suspect]
     Indication: PRODUCT USED FOR UNKNOWN INDICATION
     Route: 042
  11. DIOVAN [Concomitant]
     Route: 065
     Dates: start: 2012

REACTIONS (11)
  - Convulsion [Not Recovered/Not Resolved]
  - Suicide attempt [Recovered/Resolved]
  - Depression [Unknown]
  - Hallucination, auditory [Unknown]
  - Disturbance in attention [Not Recovered/Not Resolved]
  - Post-traumatic stress disorder [Unknown]
  - Intentional overdose [Recovered/Resolved]
  - Drug ineffective [Unknown]
  - Drug dispensing error [Unknown]
  - Hypertension [Not Recovered/Not Resolved]
  - Impaired work ability [Unknown]
